FAERS Safety Report 25870164 (Version 1)
Quarter: 2025Q4

REPORT INFORMATION
  Report Type: Spontaneous
  Country: BA (occurrence: BA)
  Receive Date: 20251001
  Receipt Date: 20251001
  Transmission Date: 20260118
  Serious: Yes (Life-Threatening, Hospitalization, Other)
  Sender: BRISTOL-MYERS SQUIBB COMPANY
  Company Number: BA-BRISTOL-MYERS SQUIBB COMPANY-2025-133943

PATIENT
  Age: 80 Year
  Sex: Male

DRUGS (4)
  1. ELIQUIS [Suspect]
     Active Substance: APIXABAN
     Indication: Product used for unknown indication
  2. CARVEDILOL [Suspect]
     Active Substance: CARVEDILOL
     Indication: Product used for unknown indication
  3. CARVEDILOL [Suspect]
     Active Substance: CARVEDILOL
  4. LOSARTAN [Suspect]
     Active Substance: LOSARTAN
     Indication: Product used for unknown indication

REACTIONS (2)
  - Cardiac failure acute [Recovering/Resolving]
  - Congestive hepatopathy [Unknown]
